FAERS Safety Report 24680651 (Version 2)
Quarter: 2025Q3

REPORT INFORMATION
  Report Type: Report from Study
  Country: US (occurrence: US)
  Receive Date: 20241129
  Receipt Date: 20250803
  Transmission Date: 20251020
  Serious: Yes (Hospitalization)
  Sender: ALEXION PHARMACEUTICALS
  Company Number: US-AstraZeneca-CH-00722956A

PATIENT
  Sex: Male
  Weight: 66.68 kg

DRUGS (2)
  1. OLAPARIB [Suspect]
     Active Substance: OLAPARIB
     Indication: Prostate cancer
     Dosage: 300 MILLIGRAM, Q12H
     Dates: start: 20240716
  2. OLAPARIB [Suspect]
     Active Substance: OLAPARIB
     Dosage: 150 MILLIGRAM, Q12H
     Dates: start: 20240716

REACTIONS (3)
  - Cellulitis [Unknown]
  - Adverse event [Unknown]
  - Product dose omission issue [Unknown]
